FAERS Safety Report 25774698 (Version 1)
Quarter: 2025Q3

REPORT INFORMATION
  Report Type: Spontaneous
  Country: US (occurrence: US)
  Receive Date: 20250908
  Receipt Date: 20250908
  Transmission Date: 20251020
  Serious: No
  Sender: MERCK SHARP & DOHME LLC
  Company Number: US-009507513-2320897

PATIENT
  Age: 8 Decade
  Sex: Male

DRUGS (1)
  1. PEMBROLIZUMAB [Suspect]
     Active Substance: PEMBROLIZUMAB
     Indication: Malignant melanoma
     Route: 042

REACTIONS (4)
  - Dysgeusia [Unknown]
  - Hypopituitarism [Unknown]
  - Dermatitis [Unknown]
  - Product use in unapproved indication [Unknown]
